APPROVED DRUG PRODUCT: HALDOL
Active Ingredient: HALOPERIDOL LACTATE
Strength: EQ 2MG BASE/ML **Federal Register determination that product was not discontinued or withdrawn for safety or effectiveness reasons**
Dosage Form/Route: CONCENTRATE;ORAL
Application: N015922 | Product #001
Applicant: ORTHO MCNEIL PHARMACEUTICAL
Approved: Approved Prior to Jan 1, 1982 | RLD: Yes | RS: No | Type: DISCN